FAERS Safety Report 9097084 (Version 1)
Quarter: 2013Q1

REPORT INFORMATION
  Report Type: Spontaneous
  Country: GB (occurrence: None)
  Receive Date: 20130123
  Receipt Date: 20130123
  Transmission Date: 20140127
  Serious: Yes (Disabling)
  Sender: FDA-Public Use
  Company Number: AUR-APL-2013-00725

PATIENT
  Age: 50 Year
  Sex: Female
  Weight: 64.39 kg

DRUGS (1)
  1. AMOXICILLIN (AMOXICILLIN) [Suspect]
     Indication: SINUSITIS
     Dosage: (500 MG,3 IN 1 D)
     Route: 048
     Dates: start: 20121004

REACTIONS (5)
  - Migraine [None]
  - Nausea [None]
  - Fatigue [None]
  - Impaired work ability [None]
  - Activities of daily living impaired [None]
